FAERS Safety Report 10327265 (Version 1)
Quarter: 2014Q3

REPORT INFORMATION
  Report Type: Report from Study
  Country: GB (occurrence: GB)
  Receive Date: 20140720
  Receipt Date: 20140720
  Transmission Date: 20150326
  Serious: Yes (Death)
  Sender: FDA-Public Use
  Company Number: GB-ROCHE-1437474

PATIENT
  Age: 79 Year
  Sex: Female

DRUGS (3)
  1. CAPECITABINE [Suspect]
     Active Substance: CAPECITABINE
     Indication: BREAST CANCER
     Route: 048
     Dates: end: 20130610
  2. DOMPERIDONE [Concomitant]
     Active Substance: DOMPERIDONE
     Indication: BREAST CANCER
     Route: 048
     Dates: end: 20130610
  3. LOPERAMIDE [Concomitant]
     Active Substance: LOPERAMIDE
     Indication: BREAST CANCER
     Route: 048
     Dates: end: 20130610

REACTIONS (1)
  - Death [Fatal]
